FAERS Safety Report 4977035-3 (Version None)
Quarter: 2006Q2

REPORT INFORMATION
  Report Type: 
  Country: None (occurrence: None)
  Receive Date: 20060419
  Receipt Date: 20060411
  Transmission Date: 20061013
  Serious: Yes (Hospitalization)
  Sender: FDA-Public Use
  Company Number: US-JNJFOC-20060403096

PATIENT
  Sex: Male

DRUGS (1)
  1. SIMPLY SLEEP NIGHTTIME SLEEP AID [Suspect]
     Indication: INSOMNIA
     Dosage: APPROXIMATELY 300 MG, ONCE
     Route: 048

REACTIONS (2)
  - ACCIDENTAL OVERDOSE [None]
  - SOMNOLENCE [None]
